FAERS Safety Report 18586035 (Version 3)
Quarter: 2021Q4

REPORT INFORMATION
  Report Type: Spontaneous
  Country: JP (occurrence: JP)
  Receive Date: 20201207
  Receipt Date: 20211209
  Transmission Date: 20220303
  Serious: Yes (Other)
  Sender: FDA-Public Use
  Company Number: JP-JNJFOC-A-CH2018-180141

PATIENT
  Age: 81 Year
  Sex: Female
  Weight: 35.7 kg

DRUGS (18)
  1. UPTRAVI [Suspect]
     Active Substance: SELEXIPAG
     Indication: Pulmonary hypertension
     Dosage: 0.2 MG, BID
     Route: 048
     Dates: start: 20180718, end: 20180731
  2. UPTRAVI [Suspect]
     Active Substance: SELEXIPAG
     Dosage: 0.6 MG, QD
     Route: 048
     Dates: start: 20180801, end: 20180814
  3. UPTRAVI [Suspect]
     Active Substance: SELEXIPAG
     Dosage: 0.2 MG, BID
     Route: 048
     Dates: start: 20180815
  4. SAMSCA [Suspect]
     Active Substance: TOLVAPTAN
     Indication: Product used for unknown indication
     Route: 048
     Dates: start: 20200824
  5. WARFARIN [Suspect]
     Active Substance: WARFARIN
     Indication: Prophylaxis
     Route: 048
     Dates: end: 20190326
  6. WARFARIN [Suspect]
     Active Substance: WARFARIN
     Route: 048
     Dates: start: 20190410, end: 20200121
  7. WARFARIN [Suspect]
     Active Substance: WARFARIN
     Route: 048
     Dates: start: 20200122, end: 20210602
  8. WARFARIN [Suspect]
     Active Substance: WARFARIN
     Route: 048
     Dates: start: 20210605, end: 20210608
  9. WARFARIN [Suspect]
     Active Substance: WARFARIN
     Route: 048
     Dates: start: 20210609, end: 20210615
  10. WARFARIN [Suspect]
     Active Substance: WARFARIN
     Route: 048
     Dates: start: 20210616
  11. TRACLEER [Concomitant]
     Active Substance: BOSENTAN
     Indication: Pulmonary hypertension
     Dosage: 250 MG, QD
     Route: 048
     Dates: end: 20210518
  12. REVATIO [Concomitant]
     Active Substance: SILDENAFIL CITRATE
     Indication: Pulmonary hypertension
     Dosage: 40 MG, QD
  13. METILDIGOXIN [Concomitant]
     Active Substance: METILDIGOXIN
     Indication: Atrial fibrillation
     Dosage: 0.05 MG, QD
  14. CARVEDILOL [Concomitant]
     Active Substance: CARVEDILOL
     Indication: Cardiac failure
     Dosage: 15 MG, QD
  15. FUROSEMIDE [Concomitant]
     Active Substance: FUROSEMIDE
     Indication: Cardiac failure
     Dosage: UNK
  16. SODIUM FERROUS CITRATE [Concomitant]
     Active Substance: SODIUM FERROUS CITRATE
     Indication: Anaemia
     Dosage: 0.6 G, QD
  17. CALONAL [Concomitant]
     Active Substance: ACETAMINOPHEN
     Indication: Headache
     Dosage: UNK
     Dates: start: 20180815
  18. OPSUMIT [Concomitant]
     Active Substance: MACITENTAN
     Indication: Pulmonary hypertension
     Dates: start: 20210519

REACTIONS (9)
  - Pneumonia bacterial [Recovered/Resolved]
  - Headache [Recovered/Resolved]
  - Diarrhoea [Recovered/Resolved]
  - Pyrexia [Recovered/Resolved]
  - Cough [Recovered/Resolved]
  - Oropharyngeal pain [Recovered/Resolved]
  - Lung infiltration [Recovered/Resolved]
  - Hypernatraemia [Recovered/Resolved]
  - International normalised ratio increased [Recovering/Resolving]

NARRATIVE: CASE EVENT DATE: 20180719
